FAERS Safety Report 10169923 (Version 1)
Quarter: 2014Q2

REPORT INFORMATION
  Report Type: Spontaneous
  Country: FR (occurrence: FR)
  Receive Date: 20140513
  Receipt Date: 20140513
  Transmission Date: 20141212
  Serious: Yes (Hospitalization)
  Sender: FDA-Public Use
  Company Number: FR-ASTRAZENECA-2014SE30839

PATIENT
  Age: 87 Year
  Sex: Female

DRUGS (5)
  1. MOPRAL [Suspect]
     Route: 048
     Dates: end: 20140328
  2. NORSET [Suspect]
     Route: 048
     Dates: end: 20140328
  3. KARDEGIC [Suspect]
     Route: 048
  4. COVERAM [Suspect]
     Dosage: 10 MG / 5 MG 1 DF EVERY DAY
     Route: 065
     Dates: end: 20140328
  5. XANAX [Concomitant]
     Route: 048
     Dates: end: 20140328

REACTIONS (8)
  - Hyperammonaemia [Recovered/Resolved]
  - Confusional state [Recovered/Resolved]
  - Gastroenteritis [Unknown]
  - General physical health deterioration [Unknown]
  - Decreased appetite [Unknown]
  - Oligodipsia [Unknown]
  - Nutritional condition abnormal [Unknown]
  - Hyperthyroidism [Unknown]
